FAERS Safety Report 5655152-2 (Version None)
Quarter: 2008Q1

REPORT INFORMATION
  Report Type: 
  Country: None (occurrence: None)
  Receive Date: 20080307
  Receipt Date: 20080225
  Transmission Date: 20080703
  Serious: Yes (Congenital Anomaly, Other)
  Sender: FDA-Public Use
  Company Number: DE-AMGEN-US260324

PATIENT

DRUGS (3)
  1. ENBREL [Suspect]
     Indication: DRUG USE FOR UNKNOWN INDICATION
     Route: 064
  2. AZATHIOPRINE [Suspect]
     Dosage: 50 MG / DAY
     Route: 064
  3. CORTISONE [Concomitant]
     Route: 065

REACTIONS (3)
  - ABORTION SPONTANEOUS [None]
  - NEURAL TUBE DEFECT [None]
  - TRANSMISSION OF DRUG VIA SEMEN [None]
